FAERS Safety Report 7930458-2 (Version None)
Quarter: 2011Q4

REPORT INFORMATION
  Report Type: 
  Country: None (occurrence: None)
  Receive Date: 20111121
  Receipt Date: 20111107
  Transmission Date: 20120403
  Serious: Yes (Hospitalization)
  Sender: FDA-Public Use
  Company Number: US-ROCHE-1011660

PATIENT
  Sex: Female

DRUGS (3)
  1. HERCEPTIN [Suspect]
     Indication: PRODUCT USED FOR UNKNOWN INDICATION
     Dosage: OVER 90 MIN ON DAY1 OF WEEK 1
     Route: 042
     Dates: start: 20030916
  2. GEFITINIB [Suspect]
     Indication: PRODUCT USED FOR UNKNOWN INDICATION
     Route: 048
  3. HERCEPTIN [Suspect]
     Dosage: OVER 30 MIN ON DAY1 PER WEEK STARTING ON WEEK2.
     Route: 042

REACTIONS (2)
  - PATHOLOGICAL FRACTURE [None]
  - BONE PAIN [None]
